FAERS Safety Report 4649721-6 (Version None)
Quarter: 2005Q2

REPORT INFORMATION
  Report Type: 
  Country: None (occurrence: None)
  Receive Date: 20050427
  Receipt Date: 20050408
  Transmission Date: 20051028
  Serious: Yes (Hospitalization, Other)
  Sender: FDA-Public Use
  Company Number: US_0504115286

PATIENT
  Age: 63 Year
  Sex: Female

DRUGS (2)
  1. HUMALOG [Suspect]
     Indication: DIABETES MELLITUS
     Dosage: 12 U AS NEEDED
     Dates: start: 20031201
  2. LANTUS [Concomitant]

REACTIONS (2)
  - DYSPNOEA EXERTIONAL [None]
  - WEIGHT INCREASED [None]
